FAERS Safety Report 21238889 (Version 2)
Quarter: 2024Q2

REPORT INFORMATION
  Report Type: Report from Study
  Country: US (occurrence: US)
  Receive Date: 20220822
  Receipt Date: 20240410
  Transmission Date: 20240716
  Serious: Yes (Other)
  Sender: FDA-Public Use
  Company Number: US-TAKEDA-2021TUS029340

PATIENT
  Sex: Male

DRUGS (6)
  1. PONATINIB [Suspect]
     Active Substance: PONATINIB
     Indication: Chronic myeloid leukaemia (in remission)
     Dosage: 45 MILLIGRAM, QD
     Route: 048
     Dates: end: 20210426
  2. PONATINIB [Suspect]
     Active Substance: PONATINIB
     Dosage: 15 MILLIGRAM, QD
     Route: 048
  3. PONATINIB [Suspect]
     Active Substance: PONATINIB
     Dosage: 30 MILLIGRAM, QD
     Route: 048
  4. PONATINIB [Suspect]
     Active Substance: PONATINIB
     Dosage: 45 MILLIGRAM, QD
     Route: 048
  5. TYLENOL [Concomitant]
     Active Substance: ACETAMINOPHEN
     Indication: Pain
     Dosage: UNK
     Route: 065
  6. METHIMAZOLE [Concomitant]
     Active Substance: METHIMAZOLE
     Dosage: UNK
     Route: 065

REACTIONS (19)
  - Hyperthyroidism [Unknown]
  - Philadelphia chromosome positive [Unknown]
  - Nervousness [Unknown]
  - Feeling jittery [Unknown]
  - Swelling face [Recovering/Resolving]
  - Dry mouth [Unknown]
  - Dry eye [Unknown]
  - Arthralgia [Unknown]
  - Pain in extremity [Unknown]
  - Tremor [Unknown]
  - Dizziness [Recovering/Resolving]
  - Headache [Recovered/Resolved]
  - Erythema [Recovering/Resolving]
  - Blood pressure increased [Recovering/Resolving]
  - Bone pain [Unknown]
  - Fatigue [Unknown]
  - Constipation [Unknown]
  - Pain [Unknown]
  - Night sweats [Unknown]
